FAERS Safety Report 6352720-X (Version None)
Quarter: 2009Q3

REPORT INFORMATION
  Report Type: 
  Country: None (occurrence: None)
  Receive Date: 20090912
  Receipt Date: 20090622
  Transmission Date: 20100115
  Serious: No
  Sender: FDA-Public Use
  Company Number: US-ABBOTT-08P-163-0445121-00

PATIENT
  Sex: Male
  Weight: 70.37 kg

DRUGS (11)
  1. HUMIRA [Suspect]
     Indication: CROHN'S DISEASE
     Route: 058
     Dates: start: 20080206
  2. HUMIRA [Suspect]
     Route: 058
  3. TRAMADOL HCL [Concomitant]
     Indication: ARTHRALGIA
     Route: 048
  4. ALPRAZOLAM [Concomitant]
     Indication: ANXIETY
     Route: 048
  5. AMITRIPTYLINE [Concomitant]
     Indication: DRUG USE FOR UNKNOWN INDICATION
     Route: 048
  6. ZOLTIDEM [Concomitant]
     Indication: INSOMNIA
     Route: 048
  7. SERATALINE [Concomitant]
     Indication: MIGRAINE
     Route: 048
  8. ESOMEPRAZOLE MAGNESIUM [Concomitant]
     Indication: GASTROOESOPHAGEAL REFLUX DISEASE
     Route: 048
  9. COLESEVELAM HYDROCHLORIDE [Concomitant]
     Indication: BLOOD CHOLESTEROL INCREASED
     Route: 048
  10. SUMATRIPTAN SUCCINATE [Concomitant]
     Indication: MIGRAINE
     Route: 050
  11. ZOLPIDEM TARTRATE [Concomitant]
     Indication: INSOMNIA
     Route: 048

REACTIONS (1)
  - ACCIDENTAL NEEDLE STICK [None]
